FAERS Safety Report 8843379 (Version 2)
Quarter: 2012Q4

REPORT INFORMATION
  Report Type: 
  Country: BR (occurrence: BR)
  Receive Date: 20121016
  Receipt Date: 20121108
  Transmission Date: 20130627
  Serious: Yes (Hospitalization)
  Sender: FDA-Public Use
  Company Number: BR-PFIZER INC-2012251903

PATIENT
  Age: 55 Year
  Sex: Female
  Weight: 60 kg

DRUGS (4)
  1. XALACOM [Suspect]
     Indication: GLAUCOMA
     Dosage: one drop in each eye, once daily
     Route: 047
     Dates: start: 2006, end: 2010
  2. XALATAN [Suspect]
     Indication: GLAUCOMA
     Dosage: two drops in the left eye, 1x/day
     Route: 047
     Dates: start: 2010
  3. PURAN T4 [Concomitant]
     Indication: THYROID DISORDER
     Dosage: 25 mg, 1x/day
     Dates: start: 2007
  4. RYTMONORM [Concomitant]
     Indication: ARRHYTHMIA
     Dosage: 450 mg (one and a half tablet of 300mg) daily,
     Dates: start: 1977

REACTIONS (2)
  - Glaucoma [Unknown]
  - Off label use [Not Recovered/Not Resolved]
